FAERS Safety Report 6470488-3 (Version None)
Quarter: 2009Q4

REPORT INFORMATION
  Report Type: 
  Country: None (occurrence: None)
  Receive Date: 20091203
  Receipt Date: 20091123
  Transmission Date: 20100525
  Serious: Yes (Disabling)
  Sender: FDA-Public Use
  Company Number: US-WYE-H11633409

PATIENT
  Sex: Female
  Weight: 70.64 kg

DRUGS (7)
  1. METHYLNALTREXONE BROMIDE [Suspect]
     Indication: CONSTIPATION
     Route: 058
     Dates: start: 20090331, end: 20091015
  2. CYANOCOBALAMIN [Concomitant]
     Indication: PROPHYLAXIS
     Dosage: 1000 MCG IM Q MONTH
     Route: 030
     Dates: start: 20071017
  3. NORCO [Concomitant]
     Indication: MULTIPLE SCLEROSIS
     Dosage: 10/325 MG 1-5 TIMES DAILY
     Route: 048
     Dates: start: 20090128
  4. FLECTOR [Concomitant]
     Indication: MULTIPLE SCLEROSIS
     Dosage: 1/3% 1 PATCH BID
     Route: 062
     Dates: start: 20080801
  5. FLEXERIL [Concomitant]
     Indication: INSOMNIA
     Route: 048
     Dates: start: 20090910
  6. TIZANIDINE HCL [Concomitant]
     Indication: MULTIPLE SCLEROSIS
     Route: 048
     Dates: start: 20080804
  7. AVONEX [Concomitant]
     Indication: MULTIPLE SCLEROSIS
     Dosage: 30 MCG IM Q WEEK
     Route: 030
     Dates: start: 20070713, end: 20091106

REACTIONS (2)
  - CHOROIDITIS [None]
  - MACULAR DEGENERATION [None]
